FAERS Safety Report 24450918 (Version 5)
Quarter: 2025Q2

REPORT INFORMATION
  Report Type: Spontaneous
  Country: US (occurrence: US)
  Receive Date: 20241017
  Receipt Date: 20250428
  Transmission Date: 20250717
  Serious: Yes (Other)
  Sender: RADIUS PHARM
  Company Number: US-RADIUS HEALTH INC.-2024US008139

PATIENT
  Sex: Female

DRUGS (2)
  1. TYMLOS [Suspect]
     Active Substance: ABALOPARATIDE
     Indication: Osteoporosis
     Dosage: 80 MICROGRAM, QD
     Route: 058
     Dates: start: 2023
  2. VITAMIN D NOS [Concomitant]
     Active Substance: CHOLECALCIFEROL\ERGOCALCIFEROL
     Indication: Product used for unknown indication

REACTIONS (8)
  - Pituitary tumour benign [Unknown]
  - Hypothalamo-pituitary disorder [Unknown]
  - Antiphospholipid antibodies positive [Unknown]
  - Hip fracture [Unknown]
  - Femur fracture [Unknown]
  - Foot fracture [Unknown]
  - Condition aggravated [Unknown]
  - Dizziness [Unknown]
